FAERS Safety Report 13830125 (Version 1)
Quarter: 2017Q3

REPORT INFORMATION
  Report Type: Spontaneous
  Country: DE (occurrence: DE)
  Receive Date: 20170803
  Receipt Date: 20170803
  Transmission Date: 20171127
  Serious: Yes (Other)
  Sender: FDA-Public Use
  Company Number: DE-JNJFOC-20170801001

PATIENT
  Age: 78 Year
  Sex: Female
  Weight: 54 kg

DRUGS (3)
  1. FALITHROM [Concomitant]
     Active Substance: PHENPROCOUMON
     Indication: ARRHYTHMIA
     Route: 048
     Dates: start: 1994, end: 201704
  2. FALITHROM [Concomitant]
     Active Substance: PHENPROCOUMON
     Indication: ARRHYTHMIA
     Route: 048
     Dates: start: 201706
  3. XARELTO [Suspect]
     Active Substance: RIVAROXABAN
     Indication: PRODUCT USED FOR UNKNOWN INDICATION
     Route: 048
     Dates: start: 2017, end: 201706

REACTIONS (3)
  - Nausea [Recovered/Resolved]
  - Headache [Recovered/Resolved]
  - Prothrombin time abnormal [Recovered/Resolved]

NARRATIVE: CASE EVENT DATE: 201706
